FAERS Safety Report 11737793 (Version 1)
Quarter: 2015Q4

REPORT INFORMATION
  Report Type: Spontaneous
  Country: US (occurrence: US)
  Receive Date: 20151110
  Receipt Date: 20151110
  Transmission Date: 20160304
  Serious: No
  Sender: FDA-Public Use
  Company Number: US-ELI_LILLY_AND_COMPANY-US201110004958

PATIENT
  Age: 80 Year
  Sex: Female

DRUGS (2)
  1. FORTEO [Suspect]
     Active Substance: TERIPARATIDE
     Dosage: 20 UG, QD
  2. FORTEO [Suspect]
     Active Substance: TERIPARATIDE
     Indication: OSTEOPOROSIS
     Dosage: 20 UG, QD
     Dates: start: 2011

REACTIONS (10)
  - Fall [Unknown]
  - Contusion [Unknown]
  - Dysphonia [Unknown]
  - Haemorrhage [Unknown]
  - Swelling [Recovered/Resolved]
  - Skin injury [Unknown]
  - Nasopharyngitis [Unknown]
  - Dyskinesia [Recovered/Resolved]
  - Vision blurred [Not Recovered/Not Resolved]
  - Pain [Recovering/Resolving]

NARRATIVE: CASE EVENT DATE: 201109
